FAERS Safety Report 9764505 (Version 2)
Quarter: 2013Q4

REPORT INFORMATION
  Report Type: Report from Study
  Country: US (occurrence: US)
  Receive Date: 20131217
  Receipt Date: 20131217
  Transmission Date: 20140711
  Serious: Yes (Hospitalization, Other)
  Sender: FDA-Public Use
  Company Number: US-BRISTOL-MYERS SQUIBB COMPANY-15937865

PATIENT
  Age: 66 Year
  Sex: Female
  Weight: 103.18 kg

DRUGS (3)
  1. IXEMPRA [Suspect]
     Indication: ENDOMETRIAL ADENOCARCINOMA
     Dosage: INTERRUPTED ON 21JUN11: 7DAYS. 30 MG/M2 IV OVER 1 HR ON DAY I X 6 CYCLES
     Route: 042
     Dates: start: 20110329
  2. CARBOPLATIN [Suspect]
     Indication: ENDOMETRIAL ADENOCARCINOMA
     Dosage: INTER ON 21JUN2011: 7DAYS. AUC = 6 IV OVER 30 MINUTES ON DAY 1 X 6 CYCLES.
     Route: 042
     Dates: start: 20110329
  3. RHUMAB-E25 [Suspect]
     Indication: ENDOMETRIAL ADENOCARCINOMA
     Dosage: INTERRUPTED ON 21JUN11: 7DAYS. 15 MG/KG IV OVER 3 0-90 MINUTES ON DAY 1 X 6 CYCLES
     Route: 042
     Dates: start: 20110329

REACTIONS (8)
  - Platelet count decreased [Recovered/Resolved with Sequelae]
  - Cystitis [Recovered/Resolved with Sequelae]
  - Dehydration [Recovered/Resolved with Sequelae]
  - Pyrexia [Recovered/Resolved with Sequelae]
  - Muscular weakness [Recovered/Resolved with Sequelae]
  - Neutrophil count decreased [Recovered/Resolved with Sequelae]
  - White blood cell count decreased [Recovered/Resolved with Sequelae]
  - Anaemia [Recovered/Resolved with Sequelae]
